FAERS Safety Report 9699097 (Version 1)
Quarter: 2013Q4

REPORT INFORMATION
  Report Type: Spontaneous
  Country: US (occurrence: None)
  Receive Date: 20131112
  Receipt Date: 20131112
  Transmission Date: 20140711
  Serious: Yes (Other)
  Sender: FDA-Public Use
  Company Number: 2011027417

PATIENT
  Sex: Male
  Weight: 70.31 kg

DRUGS (9)
  1. ZEMAIRA [Suspect]
     Indication: ALPHA-1 ANTI-TRYPSIN
     Dosage: 60 MG/KG WEEKLY INTRAVENOUS (NOT OTHER SPECIFIED)), (SINCE 2008 INTRAVENOUS  (NOT OTHERWISE SPECIFIED)), (SINCE DEC-2008 INTRAVENOUS (NOT OTHERWISE SPECIFIED)), (05-NOV-2013 10:30 INTRAVENOUS (NOT OTHERWISE SPECIFIED))
     Route: 042
  2. MORPHINE SULFATE (MORPHINE SULFATE) INJECTION [Concomitant]
  3. VENTOLIN HFA (SALBUTAMOL SULFATE) [Concomitant]
  4. ALPRAZOLAM (ALPRAZOLAM) [Concomitant]
  5. SODIUM CHLORIDE [Concomitant]
  6. ALBUTEROL (SALBUTAMOL) [Concomitant]
  7. ADVAIR (SERETIDE ) [Concomitant]
  8. HYDROCODONE APAP (PROCET) [Concomitant]
  9. COMBIVENT (COMBIVENT) [Concomitant]

REACTIONS (9)
  - Abdominal discomfort [None]
  - Dizziness [None]
  - Nausea [None]
  - Vomiting [None]
  - Pallor [None]
  - Headache [None]
  - Infusion related reaction [None]
  - Suicidal ideation [None]
  - Feeling abnormal [None]
